FAERS Safety Report 6645948-2 (Version None)
Quarter: 2010Q1

REPORT INFORMATION
  Report Type: 
  Country: None (occurrence: None)
  Receive Date: 20100323
  Receipt Date: 20100319
  Transmission Date: 20100710
  Serious: Yes (Death, Other)
  Sender: FDA-Public Use
  Company Number: PHHY2009CA47070

PATIENT
  Sex: Male

DRUGS (1)
  1. EXJADE [Suspect]
     Indication: B-CELL LYMPHOMA
     Dosage: 250 MG, UNK
     Route: 048
     Dates: start: 20090901

REACTIONS (3)
  - ASTHENIA [None]
  - DEATH [None]
  - MALAISE [None]
